FAERS Safety Report 8398648-5 (Version None)
Quarter: 2012Q2

REPORT INFORMATION
  Report Type: 
  Country: None (occurrence: None)
  Receive Date: 20120524
  Receipt Date: 20120508
  Transmission Date: 20120825
  Serious: Yes (Other)
  Sender: FDA-Public Use
  Company Number: A0977549A

PATIENT
  Age: 40 Year
  Sex: Female

DRUGS (1)
  1. CLOBETASOL PROPIONATE [Suspect]
     Indication: DRY SKIN
     Dosage: TOPICAL
     Route: 061

REACTIONS (2)
  - PITUITARY TUMOUR BENIGN [None]
  - ADRENAL INSUFFICIENCY [None]
